FAERS Safety Report 12051189 (Version 1)
Quarter: 2016Q1

REPORT INFORMATION
  Report Type: Spontaneous
  Country: US (occurrence: None)
  Receive Date: 20160208
  Receipt Date: 20160208
  Transmission Date: 20160526
  Serious: Yes (Disabling)
  Sender: FDA-Public Use
  Company Number: None

PATIENT
  Age: 44 Year
  Sex: Female
  Weight: 83.92 kg

DRUGS (9)
  1. BIOIDENTICAL HORMONES [Concomitant]
  2. DHA [Concomitant]
     Active Substance: DIETARY SUPPLEMENT
  3. LEVAQUIN [Suspect]
     Active Substance: LEVOFLOXACIN
     Indication: BRONCHITIS
     Route: 048
  4. VITAMIN D3 [Concomitant]
     Active Substance: CHOLECALCIFEROL
  5. PROBIOTIC [Concomitant]
     Active Substance: PROBIOTICS NOS
  6. POWDER ZEOLITE [Concomitant]
  7. MAGNESIUM [Concomitant]
     Active Substance: MAGNESIUM
  8. ZINC [Concomitant]
     Active Substance: ZINC\ZINC CHLORIDE
  9. BIOTIN [Concomitant]
     Active Substance: BIOTIN

REACTIONS (20)
  - Neuropathy peripheral [None]
  - Retinal tear [None]
  - Hepatotoxicity [None]
  - Tooth disorder [None]
  - Mitochondrial cytopathy [None]
  - Arthralgia [None]
  - Quality of life decreased [None]
  - Headache [None]
  - Malaise [None]
  - Alopecia [None]
  - Asthenia [None]
  - Sleep disorder [None]
  - Adrenal disorder [None]
  - Amnesia [None]
  - Hypothyroidism [None]
  - Nightmare [None]
  - Activities of daily living impaired [None]
  - Pain [None]
  - Inflammation [None]
  - Anxiety [None]

NARRATIVE: CASE EVENT DATE: 20100131
